FAERS Safety Report 17648367 (Version 1)
Quarter: 2020Q2

REPORT INFORMATION
  Report Type: Spontaneous
  Country: FR (occurrence: FR)
  Receive Date: 20200408
  Receipt Date: 20200408
  Transmission Date: 20200713
  Serious: Yes (Hospitalization)
  Sender: FDA-Public Use
  Company Number: FR-ELI_LILLY_AND_COMPANY-FR202004001042

PATIENT
  Age: 78 Year
  Sex: Female
  Weight: 63.4 kg

DRUGS (16)
  1. SPIRONOLACTONE. [Concomitant]
     Active Substance: SPIRONOLACTONE
  2. TEMESTA EXPIDET [Suspect]
     Active Substance: LORAZEPAM
     Indication: ANXIOLYTIC THERAPY
     Route: 048
     Dates: end: 201911
  3. SPIRIVA [Suspect]
     Active Substance: TIOTROPIUM BROMIDE MONOHYDRATE
     Indication: CHRONIC OBSTRUCTIVE PULMONARY DISEASE
     Dosage: UNK, UNKNOWN
     Route: 048
  4. CORTANCYL [Concomitant]
     Active Substance: PREDNISONE
  5. IMETH [METHOTREXATE SODIUM] [Concomitant]
     Active Substance: METHOTREXATE SODIUM
  6. FUROSEMIDE. [Concomitant]
     Active Substance: FUROSEMIDE
  7. PANTOPRAZOLE [Concomitant]
     Active Substance: PANTOPRAZOLE
  8. DUOPLAVIN [Concomitant]
     Active Substance: ASPIRIN\CLOPIDOGREL
  9. SPECIAFOLDINE [Concomitant]
     Active Substance: FOLIC ACID
  10. BISOCE [Concomitant]
     Active Substance: BISOPROLOL
  11. RAMIPRIL. [Concomitant]
     Active Substance: RAMIPRIL
  12. SULFARLEM [Concomitant]
     Active Substance: ANETHOLTRITHION
  13. DULOXETINE HYDROCHLORIDE. [Suspect]
     Active Substance: DULOXETINE HYDROCHLORIDE
     Indication: NEURALGIA
     Dosage: 1 DOSAGE FORM, DAILY
     Route: 048
  14. ATORVASTATINE ACCORD [Concomitant]
     Active Substance: ATORVASTATIN
  15. OROCAL D [Concomitant]
  16. LAROXYL [Suspect]
     Active Substance: AMITRIPTYLINE HYDROCHLORIDE
     Indication: DEPRESSION
     Dosage: 10 DROPS DAILY
     Route: 048

REACTIONS (2)
  - Constipation [Recovered/Resolved]
  - Fall [Recovered/Resolved]

NARRATIVE: CASE EVENT DATE: 201911
